FAERS Safety Report 6676212-3 (Version None)
Quarter: 2010Q2

REPORT INFORMATION
  Report Type: 
  Country: None (occurrence: None)
  Receive Date: 20100412
  Receipt Date: 20100401
  Transmission Date: 20101027
  Serious: Yes (Other)
  Sender: FDA-Public Use
  Company Number: US-JNJFOC-20100400931

PATIENT
  Sex: Female
  Weight: 54.43 kg

DRUGS (1)
  1. ELMIRON [Suspect]
     Indication: BLADDER PAIN
     Route: 048

REACTIONS (1)
  - NEPHROLITHIASIS [None]
